FAERS Safety Report 8065382-0 (Version None)
Quarter: 2012Q1

REPORT INFORMATION
  Report Type: 
  Country: None (occurrence: None)
  Receive Date: 20120117
  Receipt Date: 20120110
  Transmission Date: 20120608
  Serious: Yes (Hospitalization)
  Sender: FDA-Public Use
  Company Number: 2012SP000675

PATIENT
  Age: 46 Year
  Sex: Female
  Weight: 57 kg

DRUGS (19)
  1. POSACONAZOLE [Suspect]
     Indication: FUNGAL INFECTION
     Dosage: 300 MG;QID;IV
     Route: 042
     Dates: start: 20111219, end: 20111223
  2. AMLODIPINE [Concomitant]
  3. CYCLOSPORINE [Concomitant]
  4. HEPARIN LOCK-FLUSH [Concomitant]
  5. LIDOCAINE HCL VISCOUS [Concomitant]
  6. MAGNESIUM ELEMENTAL [Concomitant]
  7. MAGNESIUM SULFATE [Concomitant]
  8. ZOPICLONE [Concomitant]
  9. BETAMETHASONE [Concomitant]
  10. POTASSIUM CHLORIDE [Concomitant]
  11. PROCHLORPERAZINE [Concomitant]
  12. SODIUM CHLORIDE INJ [Concomitant]
  13. URSODIOL [Concomitant]
  14. PANTOPRAZOLE [Concomitant]
  15. POTASSIUM CHLORIDE [Concomitant]
  16. POSACONAZOLE [Suspect]
     Dosage: 400 MG;BID;PO
     Route: 048
     Dates: start: 20111224
  17. LEVOTHYROXINE SODIUM [Concomitant]
  18. HYDROMORPHONE HCL [Concomitant]
  19. VALACYCLOVIR [Concomitant]

REACTIONS (7)
  - HYPOKALAEMIA [None]
  - PARAESTHESIA [None]
  - ORAL HERPES [None]
  - LYMPHOCYTE MORPHOLOGY ABNORMAL [None]
  - HYPOMAGNESAEMIA [None]
  - LYMPHOPROLIFERATIVE DISORDER [None]
  - RASH [None]
